FAERS Safety Report 21506299 (Version 4)
Quarter: 2024Q4

REPORT INFORMATION
  Report Type: Spontaneous
  Country: US (occurrence: US)
  Receive Date: 20221026
  Receipt Date: 20241206
  Transmission Date: 20250115
  Serious: No
  Sender: GLAXOSMITHKLINE
  Company Number: US-GSKCCFUS-Case-01533346_AE-86872

PATIENT
  Age: 84 Year
  Sex: Male

DRUGS (1)
  1. TRELEGY ELLIPTA [Suspect]
     Active Substance: FLUTICASONE FUROATE\UMECLIDINIUM BROMIDE\VILANTEROL TRIFENATATE
     Indication: Chronic obstructive pulmonary disease
     Dosage: 1 PUFF(S),100/62.5/25 MCG
     Route: 055
     Dates: end: 20231005

REACTIONS (5)
  - Constipation [Unknown]
  - Productive cough [Unknown]
  - Back pain [Unknown]
  - Drug ineffective [Unknown]
  - Extra dose administered [Unknown]
